FAERS Safety Report 8445384-2 (Version None)
Quarter: 2012Q2

REPORT INFORMATION
  Report Type: 
  Country: None (occurrence: None)
  Receive Date: 20120611
  Receipt Date: 20120528
  Transmission Date: 20120825
  Serious: Yes (Other)
  Sender: FDA-Public Use
  Company Number: 2012MA006888

PATIENT
  Sex: Female

DRUGS (2)
  1. PROPRANOLOL HYDROCHLORIDE [Suspect]
     Indication: FACIAL PAIN
     Dosage: 40 MG;1X
     Dates: start: 20120523, end: 20120523
  2. SUMATRIPTAN SUCCINATE [Concomitant]

REACTIONS (6)
  - ASTHENIA [None]
  - PALLOR [None]
  - HEAT ILLNESS [None]
  - CIRCULATORY COLLAPSE [None]
  - DYSPNOEA [None]
  - DIZZINESS [None]
